FAERS Safety Report 11702877 (Version 2)
Quarter: 2015Q4

REPORT INFORMATION
  Report Type: Report from Study
  Country: FR (occurrence: FR)
  Receive Date: 20151105
  Receipt Date: 20151125
  Transmission Date: 20160304
  Serious: Yes (Death, Other)
  Sender: FDA-Public Use
  Company Number: FR-BRISTOL-MYERS SQUIBB COMPANY-BMS-2015-062853

PATIENT
  Age: 52 Year
  Sex: Male
  Weight: 67 kg

DRUGS (1)
  1. NIVOLUMAB [Suspect]
     Active Substance: NIVOLUMAB
     Indication: MALIGNANT MELANOMA
     Dosage: 3 MG/KG, UNK
     Route: 065
     Dates: start: 20150730, end: 20150911

REACTIONS (9)
  - Thyroxine free abnormal [Unknown]
  - Alanine aminotransferase abnormal [Unknown]
  - Myalgia [Not Recovered/Not Resolved]
  - Coma hepatic [Fatal]
  - Aspartate aminotransferase abnormal [Not Recovered/Not Resolved]
  - Lymphocyte count abnormal [Unknown]
  - Disease progression [Unknown]
  - Blood thyroid stimulating hormone abnormal [Unknown]
  - Creatinine renal clearance abnormal [Unknown]

NARRATIVE: CASE EVENT DATE: 201508
